FAERS Safety Report 13136353 (Version 1)
Quarter: 2017Q1

REPORT INFORMATION
  Report Type: Spontaneous
  Country: US (occurrence: US)
  Receive Date: 20170121
  Receipt Date: 20170121
  Transmission Date: 20170428
  Serious: No
  Sender: FDA-Public Use
  Company Number: US-009507513-1612USA015157

PATIENT
  Sex: Male

DRUGS (1)
  1. DULERA [Suspect]
     Active Substance: FORMOTEROL FUMARATE DIHYDRATE\MOMETASONE FUROATE
     Indication: COUGH
     Dosage: 200/5MCG/ TWO PUFFS PER DAY
     Route: 055

REACTIONS (4)
  - Product use issue [Unknown]
  - Product container issue [Unknown]
  - Underdose [Unknown]
  - Cough [Not Recovered/Not Resolved]
